FAERS Safety Report 5412725-X (Version None)
Quarter: 2007Q3

REPORT INFORMATION
  Report Type: 
  Country: None (occurrence: None)
  Receive Date: 20070809
  Receipt Date: 20070724
  Transmission Date: 20080115
  Serious: Yes (Hospitalization)
  Sender: FDA-Public Use
  Company Number: 016850

PATIENT
  Age: 53 Year
  Sex: Male

DRUGS (1)
  1. METHOTREXATE [Suspect]
     Indication: RHEUMATOID ARTHRITIS
     Dosage: 10-12.5 MG/WEEKLY,
     Dates: start: 19840201

REACTIONS (4)
  - BLOOD PRESSURE SYSTOLIC INCREASED [None]
  - HAEMATOCRIT DECREASED [None]
  - NEUTROPHIL PERCENTAGE INCREASED [None]
  - PNEUMONIA CRYPTOCOCCAL [None]
